FAERS Safety Report 22253694 (Version 3)
Quarter: 2024Q3

REPORT INFORMATION
  Report Type: Report from Study
  Country: AU (occurrence: AU)
  Receive Date: 20230426
  Receipt Date: 20240822
  Transmission Date: 20241016
  Serious: No
  Sender: ROCHE
  Company Number: AU-ROCHE-2677487

PATIENT
  Age: 61 Year
  Sex: Female

DRUGS (1)
  1. OCREVUS [Suspect]
     Active Substance: OCRELIZUMAB
     Indication: Relapsing-remitting multiple sclerosis
     Route: 041
     Dates: start: 20181101

REACTIONS (7)
  - Fatigue [Not Recovered/Not Resolved]
  - Vertigo [Unknown]
  - Sensory disturbance [Unknown]
  - Poor quality sleep [Unknown]
  - COVID-19 [Recovering/Resolving]
  - Ligament sprain [Unknown]
  - Cough [Recovering/Resolving]

NARRATIVE: CASE EVENT DATE: 20230417
